FAERS Safety Report 11660694 (Version 1)
Quarter: 2015Q4

REPORT INFORMATION
  Report Type: Spontaneous
  Country: US (occurrence: None)
  Receive Date: 20151023
  Receipt Date: 20151023
  Transmission Date: 20160304
  Serious: Yes (Hospitalization)
  Sender: FDA-Public Use
  Company Number: None

PATIENT
  Age: 66 Year
  Sex: Male
  Weight: 66.5 kg

DRUGS (1)
  1. SPIRONOLACTONE. [Suspect]
     Active Substance: SPIRONOLACTONE
     Indication: HYPERTENSION

REACTIONS (7)
  - Vomiting [None]
  - Hyperkalaemia [None]
  - Nausea [None]
  - Dizziness [None]
  - Hypotension [None]
  - Bradycardia [None]
  - Suprapubic pain [None]

NARRATIVE: CASE EVENT DATE: 20131107
